FAERS Safety Report 16155901 (Version 1)
Quarter: 2019Q2

REPORT INFORMATION
  Report Type: Spontaneous
  Country: RO (occurrence: RO)
  Receive Date: 20190404
  Receipt Date: 20190404
  Transmission Date: 20190711
  Serious: Yes (Hospitalization)
  Sender: FDA-Public Use
  Company Number: RO-ACCORD-117418

PATIENT
  Age: 29 Year
  Sex: Male

DRUGS (2)
  1. ARIPIPRAZOLE. [Suspect]
     Active Substance: ARIPIPRAZOLE
     Indication: SCHIZOPHRENIA
     Dosage: INJECTION, 400 MG, EVERY 4 WEEKS, 30 MG , PER DAY
  2. OLANZAPINE. [Suspect]
     Active Substance: OLANZAPINE
     Indication: SCHIZOPHRENIA
     Dosage: 20 MG, PER DAY, FIRST AND SECOND EPISODE
     Route: 048

REACTIONS (2)
  - Treatment noncompliance [Unknown]
  - Metabolic disorder [Recovered/Resolved]
